FAERS Safety Report 7300010-0 (Version None)
Quarter: 2011Q1

REPORT INFORMATION
  Report Type: 
  Country: None (occurrence: None)
  Receive Date: 20110217
  Receipt Date: 20110207
  Transmission Date: 20110831
  Serious: Yes (Other)
  Sender: FDA-Public Use
  Company Number: US-BAYER-2011-012920

PATIENT
  Sex: Female

DRUGS (2)
  1. ANTIBIOTICS [Concomitant]
     Indication: SUTURE INSERTION
  2. MIRENA [Suspect]
     Indication: CONTRACEPTION
     Dosage: 1 UNIT
     Route: 015
     Dates: start: 20081125

REACTIONS (4)
  - ABDOMINAL TENDERNESS [None]
  - VAGINAL CYST [None]
  - ABDOMINAL PAIN [None]
  - FUNGAL INFECTION [None]
